FAERS Safety Report 10024698 (Version 1)
Quarter: 2014Q1

REPORT INFORMATION
  Report Type: Spontaneous
  Country: US (occurrence: None)
  Receive Date: 20140319
  Receipt Date: 20140319
  Transmission Date: 20141002
  Serious: No
  Sender: FDA-Public Use
  Company Number: None

PATIENT
  Age: 66 Year
  Sex: Female
  Weight: 70 kg

DRUGS (2)
  1. INSULIN [Suspect]
  2. IV PUMP MODULE [Concomitant]

REACTIONS (2)
  - Device failure [None]
  - Blood glucose decreased [None]
